FAERS Safety Report 6056127-4 (Version None)
Quarter: 2009Q1

REPORT INFORMATION
  Report Type: 
  Country: None (occurrence: None)
  Receive Date: 20090129
  Receipt Date: 20090116
  Transmission Date: 20090719
  Serious: Yes (Death)
  Sender: FDA-Public Use
  Company Number: US-RANBAXY-2009RR-21231

PATIENT
  Age: 40 Year
  Sex: Female

DRUGS (3)
  1. CARISOPRODOL [Suspect]
     Indication: DRUG ABUSE
     Route: 048
  2. ACETAMINOPHEN WITH PROPOXYPHENE HCL TAB [Suspect]
     Indication: DRUG ABUSE
     Route: 048
  3. GABAPENTIN [Suspect]
     Indication: DRUG ABUSE
     Route: 048

REACTIONS (1)
  - DRUG ABUSE [None]
